FAERS Safety Report 24023782 (Version 1)
Quarter: 2024Q2

REPORT INFORMATION
  Report Type: Report from Study
  Country: CN (occurrence: CN)
  Receive Date: 20240627
  Receipt Date: 20240627
  Transmission Date: 20240716
  Serious: No
  Sender: FDA-Public Use
  Company Number: CN-ROCHE-3209163

PATIENT
  Age: 60 Year
  Sex: Female
  Weight: 79.0 kg

DRUGS (2)
  1. ALECENSA [Suspect]
     Active Substance: ALECTINIB HYDROCHLORIDE
     Indication: Lung neoplasm malignant
     Dosage: 150MG, 56CAPSULES, 4 SMALL BOXES?1 DF = 1 CAPSULE
     Route: 048
     Dates: start: 20200114
  2. ALECENSA [Suspect]
     Active Substance: ALECTINIB HYDROCHLORIDE
     Dosage: 150MG, 56CAPSULES, 4 SMALL BOXES
     Route: 048
     Dates: start: 20200801

REACTIONS (8)
  - Hepatic function abnormal [Not Recovered/Not Resolved]
  - Blood uric acid increased [Recovered/Resolved]
  - Asthenia [Not Recovered/Not Resolved]
  - Transaminases increased [Recovering/Resolving]
  - Increased appetite [Unknown]
  - Weight increased [Unknown]
  - Constipation [Not Recovered/Not Resolved]
  - Haemoglobin urine present [Unknown]

NARRATIVE: CASE EVENT DATE: 20220101
